FAERS Safety Report 7296487-X (Version None)
Quarter: 2011Q1

REPORT INFORMATION
  Report Type: 
  Country: None (occurrence: None)
  Receive Date: 20110216
  Receipt Date: 20110202
  Transmission Date: 20110831
  Serious: Yes (Other)
  Sender: FDA-Public Use
  Company Number: PHHY2011CH08204

PATIENT
  Sex: Female

DRUGS (8)
  1. GLEEVEC [Suspect]
     Indication: CHRONIC EOSINOPHILIC LEUKAEMIA
     Dosage: 200 MG, DAILY
     Dates: start: 20090301
  2. PAROXETINE HCL [Concomitant]
  3. GLEEVEC [Suspect]
     Dosage: 400 MG, DAILY
     Dates: end: 20110121
  4. TORASEM [Concomitant]
  5. MARCOUMAR [Concomitant]
     Dosage: UNK
  6. ALLOPURINOL [Concomitant]
  7. CONCOR [Concomitant]
  8. ZURCAL [Concomitant]

REACTIONS (2)
  - CONGESTIVE CARDIOMYOPATHY [None]
  - DYSPNOEA EXERTIONAL [None]
